FAERS Safety Report 17866121 (Version 1)
Quarter: 2020Q2

REPORT INFORMATION
  Report Type: Spontaneous
  Country: US (occurrence: US)
  Receive Date: 20200605
  Receipt Date: 20200605
  Transmission Date: 20200714
  Serious: Yes (Other)
  Sender: FDA-Public Use
  Company Number: US-009507513-2006USA001403

PATIENT
  Age: 74 Year
  Sex: Female

DRUGS (2)
  1. KEYTRUDA [Suspect]
     Active Substance: PEMBROLIZUMAB
     Indication: NON-SMALL CELL LUNG CANCER
     Dosage: 200 MG ON DAY 1 OF A 21-DAY CYCLE
     Route: 042
  2. APG 1387 [Suspect]
     Active Substance: APG-1387
     Indication: NON-SMALL CELL LUNG CANCER
     Dosage: 45 MILLIGRAM, ONCE WEEKLY IN A 21-DAY CYCLE
     Route: 042

REACTIONS (3)
  - Neoplasm recurrence [Unknown]
  - Therapy partial responder [Unknown]
  - Hyperbilirubinaemia [Unknown]
